FAERS Safety Report 8408062-1 (Version None)
Quarter: 2012Q2

REPORT INFORMATION
  Report Type: 
  Country: None (occurrence: None)
  Receive Date: 20120604
  Receipt Date: 20120524
  Transmission Date: 20120825
  Serious: Yes (Hospitalization, Disabling, Other)
  Sender: FDA-Public Use
  Company Number: US-MERCK-1203USA03328

PATIENT
  Age: 70 Year
  Sex: Female

DRUGS (8)
  1. FOSAMAX [Suspect]
     Indication: OSTEOPOROSIS
     Route: 048
     Dates: start: 19970101
  2. FOSAMAX [Suspect]
     Route: 048
     Dates: start: 19980101, end: 20080101
  3. FOSAMAX PLUS D [Suspect]
     Route: 048
     Dates: start: 20080101
  4. CALCIUM (UNSPECIFIED) AND VITAMIN D (UNSPECIFIED) [Concomitant]
     Indication: OSTEOPOROSIS
     Route: 065
  5. ALENDRONATE SODIUM [Suspect]
     Indication: OSTEOPOROSIS
     Route: 048
     Dates: start: 20080301, end: 20080901
  6. CALCIUM (UNSPECIFIED) [Concomitant]
     Route: 065
     Dates: start: 19970101
  7. FOSAMAX PLUS D [Suspect]
     Route: 048
     Dates: start: 20080101
  8. VITAMINS (UNSPECIFIED) [Concomitant]
     Route: 065
     Dates: start: 19970101

REACTIONS (19)
  - OSTEOARTHRITIS [None]
  - FEMUR FRACTURE [None]
  - OSTEOPOROSIS [None]
  - VITAMIN D DEFICIENCY [None]
  - GLAUCOMA [None]
  - BONE DENSITY DECREASED [None]
  - HYPOKALAEMIA [None]
  - VASCULAR CALCIFICATION [None]
  - UTERINE DISORDER [None]
  - THYROID DISORDER [None]
  - HAEMOGLOBIN DECREASED [None]
  - KNEE DEFORMITY [None]
  - HAEMATOCRIT DECREASED [None]
  - STRESS FRACTURE [None]
  - SPINAL DISORDER [None]
  - HYPOTHYROIDISM [None]
  - LIMB DEFORMITY [None]
  - DIARRHOEA [None]
  - HYPERCHOLESTEROLAEMIA [None]
